FAERS Safety Report 11630424 (Version 19)
Quarter: 2017Q4

REPORT INFORMATION
  Report Type: Report from Study
  Country: CA (occurrence: CA)
  Receive Date: 20151014
  Receipt Date: 20171219
  Transmission Date: 20180320
  Serious: Yes (Hospitalization, Other)
  Sender: FDA-Public Use
  Company Number: PHHY2011CA94521

PATIENT
  Age: 50 Year
  Sex: Female

DRUGS (5)
  1. SANDOSTATIN [Suspect]
     Active Substance: OCTREOTIDE ACETATE
     Indication: PANCREATIC NEUROENDOCRINE TUMOUR
     Dosage: UNK (TEST DOSE)
     Route: 058
     Dates: start: 20110329, end: 20110329
  2. AFINITOR [Suspect]
     Active Substance: EVEROLIMUS
     Indication: PRODUCT USED FOR UNKNOWN INDICATION
     Dosage: 10 MG, QD
     Route: 048
     Dates: start: 20150830, end: 201509
  3. METOPROLOL. [Suspect]
     Active Substance: METOPROLOL
     Indication: HYPERTENSION
     Route: 065
  4. SANDOSTATIN LAR DEPOT [Suspect]
     Active Substance: OCTREOTIDE ACETATE
     Indication: PANCREATIC NEUROENDOCRINE TUMOUR
     Dosage: 30 MG, QMO (EVERY 4 WEEKS)
     Route: 030
     Dates: start: 20110401, end: 20170911
  5. RAMIPRIL. [Concomitant]
     Active Substance: RAMIPRIL
     Indication: PRODUCT USED FOR UNKNOWN INDICATION
     Route: 065

REACTIONS (20)
  - Jaundice [Recovered/Resolved]
  - Malignant neoplasm progression [Unknown]
  - Malaise [Unknown]
  - Hypersensitivity [Unknown]
  - Pulmonary congestion [Unknown]
  - Asthenia [Unknown]
  - Post procedural infection [Recovering/Resolving]
  - Blood pressure increased [Unknown]
  - Pyrexia [Unknown]
  - Stomatitis [Unknown]
  - Liver abscess [Unknown]
  - Drug ineffective [Unknown]
  - Cholelithiasis [Recovering/Resolving]
  - Dizziness [Unknown]
  - Vomiting [Unknown]
  - Pain [Recovering/Resolving]
  - Neoplasm progression [Unknown]
  - Pneumonia [Unknown]
  - Ocular hyperaemia [Unknown]
  - Cough [Unknown]

NARRATIVE: CASE EVENT DATE: 2016
